FAERS Safety Report 4952993-1 (Version None)
Quarter: 2006Q1

REPORT INFORMATION
  Report Type: 
  Country: None (occurrence: None)
  Receive Date: 20060320
  Receipt Date: 20060307
  Transmission Date: 20060701
  Serious: Yes (Other)
  Sender: FDA-Public Use
  Company Number: 2006034070

PATIENT
  Age: 55 Year
  Sex: Female

DRUGS (6)
  1. DETROL LA [Suspect]
     Indication: HYPERTONIC BLADDER
     Dosage: 4 MG 4 MG 1 IN 1 ORAL
     Route: 048
     Dates: start: 20050101
  2. AMBIEN (ZOLIPIDEM TARTRATE) [Concomitant]
  3. EFFEXOR [Concomitant]
  4. AMITRIPTYLINE W/PERPHENAZINE (AMITRIPTYLINE HYDROCHLORIDE, PERPHENAZIN [Concomitant]
  5. LORTAB [Concomitant]
  6. FIORICET (BUTALBITAL, CAFFIENE, PARACETAMOL) [Concomitant]

REACTIONS (6)
  - CONDITION AGGRAVATED [None]
  - DRUG INEFFECTIVE [None]
  - HEADACHE [None]
  - INCORRECT DOSE ADMINISTERED [None]
  - MULTIPLE SCLEROSIS [None]
  - URINARY INCONTINENCE [None]
